FAERS Safety Report 8216811-0 (Version None)
Quarter: 2012Q1

REPORT INFORMATION
  Report Type: 
  Country: None (occurrence: None)
  Receive Date: 20120316
  Receipt Date: 20120307
  Transmission Date: 20120608
  Serious: Yes (Hospitalization)
  Sender: FDA-Public Use
  Company Number: US-MERCK-1109USA03247

PATIENT
  Age: 19 Year
  Sex: Male

DRUGS (9)
  1. METHOTREXATE [Concomitant]
     Route: 048
     Dates: start: 20040101, end: 20080101
  2. CALCIUM (UNSPECIFIED) [Concomitant]
     Route: 065
  3. FOSAMAX [Suspect]
     Indication: OSTEOPENIA
     Route: 048
     Dates: start: 20010124, end: 20060210
  4. PREDNISONE [Concomitant]
     Indication: JUVENILE ARTHRITIS
     Route: 048
     Dates: start: 19910101
  5. ENBREL [Concomitant]
     Dosage: 72-96 HRS APART
     Route: 058
     Dates: start: 20000101
  6. CEPHALEXIN [Concomitant]
     Route: 065
  7. FOSAMAX [Suspect]
     Indication: OSTEOPOROSIS
     Route: 048
     Dates: start: 20010124, end: 20060210
  8. NAPROXEN [Concomitant]
     Dosage: 1 QD OR BID
     Route: 048
     Dates: start: 19910101
  9. VITAMIN D (UNSPECIFIED) [Concomitant]
     Route: 065
     Dates: start: 20010101

REACTIONS (14)
  - BONE METABOLISM DISORDER [None]
  - DEVICE FAILURE [None]
  - OFF LABEL USE [None]
  - PRESYNCOPE [None]
  - NEPHROLITHIASIS [None]
  - CLAVICLE FRACTURE [None]
  - FRACTURE NONUNION [None]
  - FEMUR FRACTURE [None]
  - RHEUMATOID ARTHRITIS [None]
  - IMPAIRED HEALING [None]
  - TREATMENT NONCOMPLIANCE [None]
  - UPPER LIMB FRACTURE [None]
  - OSTEOSCLEROSIS [None]
  - OSTEOARTHRITIS [None]
